FAERS Safety Report 11723327 (Version 3)
Quarter: 2015Q4

REPORT INFORMATION
  Report Type: Spontaneous
  Country: US (occurrence: US)
  Receive Date: 20151111
  Receipt Date: 20151222
  Transmission Date: 20160304
  Serious: No
  Sender: FDA-Public Use
  Company Number: US-009507513-1510USA011368

PATIENT
  Age: 41 Year
  Sex: Female

DRUGS (1)
  1. NEXPLANON [Suspect]
     Active Substance: ETONOGESTREL
     Indication: MENORRHAGIA
     Dosage: UNK, UNKNOWN
     Route: 059
     Dates: start: 201502

REACTIONS (2)
  - Medical device complication [Unknown]
  - Off label use [Unknown]

NARRATIVE: CASE EVENT DATE: 201502
